FAERS Safety Report 8057842-3 (Version None)
Quarter: 2012Q1

REPORT INFORMATION
  Report Type: 
  Country: None (occurrence: None)
  Receive Date: 20120120
  Receipt Date: 20120117
  Transmission Date: 20120608
  Serious: No
  Sender: FDA-Public Use
  Company Number: US-BIOGENIDEC-2012BI001969

PATIENT
  Age: 51 Year
  Sex: Female

DRUGS (3)
  1. TYSABRI [Suspect]
     Indication: MULTIPLE SCLEROSIS
     Route: 042
     Dates: start: 20110608
  2. FLU SHOT [Concomitant]
     Dates: start: 20110101
  3. PNEUMONIA SHOT [Concomitant]
     Dates: start: 20110101

REACTIONS (8)
  - FEELING ABNORMAL [None]
  - MALAISE [None]
  - NASOPHARYNGITIS [None]
  - PYREXIA [None]
  - SNEEZING [None]
  - OROPHARYNGEAL PAIN [None]
  - DYSPHAGIA [None]
  - DYSPHONIA [None]
